FAERS Safety Report 6087789-3 (Version None)
Quarter: 2009Q1

REPORT INFORMATION
  Report Type: 
  Country: None (occurrence: None)
  Receive Date: 20090223
  Receipt Date: 20090212
  Transmission Date: 20090719
  Serious: Yes (Hospitalization)
  Sender: FDA-Public Use
  Company Number: FR-GILEAD-2009-0020292

PATIENT
  Age: 34 Year
  Sex: Female

DRUGS (6)
  1. VIREAD [Suspect]
     Route: 048
  2. EPZICOM [Concomitant]
     Route: 048
     Dates: start: 20080717
  3. INVIRASE [Concomitant]
     Route: 048
     Dates: start: 20080717, end: 20081122
  4. NORVIR [Concomitant]
     Route: 048
     Dates: start: 20080717
  5. TRIZIVIR [Concomitant]
     Route: 048
  6. ABACAVIR SULFATE/LAMIVUDINE [Concomitant]
     Indication: HIV INFECTION
     Route: 048

REACTIONS (5)
  - CHOLESTASIS OF PREGNANCY [None]
  - DRUG EXPOSURE DURING PREGNANCY [None]
  - FATIGUE [None]
  - HEPATOCELLULAR INJURY [None]
  - PRURITUS [None]
